FAERS Safety Report 16322396 (Version 3)
Quarter: 2019Q2

REPORT INFORMATION
  Report Type: Report from Study
  Country: BE (occurrence: BE)
  Receive Date: 20190516
  Receipt Date: 20190607
  Transmission Date: 20190711
  Serious: Yes (Disabling)
  Sender: FDA-Public Use
  Company Number: BE-MYLANLABS-2019M1045979

PATIENT
  Age: 18 Year
  Sex: Male
  Weight: 55 kg

DRUGS (11)
  1. MINOCYCLINE                        /00232402/ [Concomitant]
     Indication: MYCOBACTERIUM ABSCESSUS INFECTION
     Dosage: 200 MILLIGRAM, QD
     Route: 048
     Dates: start: 20180221
  2. ADEK [Concomitant]
     Indication: CYSTIC FIBROSIS
     Dosage: 1 DOSAGE FORM, QD
     Route: 048
  3. AMIKACIN SULFATE. [Suspect]
     Active Substance: AMIKACIN SULFATE
     Indication: MYCOBACTERIUM ABSCESSUS INFECTION
     Dosage: 590 MILLIGRAM, QD
     Route: 055
     Dates: start: 201710
  4. PULMOZYME [Concomitant]
     Active Substance: DORNASE ALFA
     Indication: CYSTIC FIBROSIS
     Dosage: UNK, QD
     Route: 055
     Dates: start: 199912
  5. AMIKACIN SULFATE. [Suspect]
     Active Substance: AMIKACIN SULFATE
     Dosage: 590 MILLIGRAM, QD
     Route: 055
     Dates: start: 20180904
  6. BEDAQUILINE [Concomitant]
     Active Substance: BEDAQUILINE
     Indication: MYCOBACTERIUM ABSCESSUS INFECTION
     Dosage: 600 MILLIGRAM, QW
     Route: 048
     Dates: start: 20180221
  7. LINEZOLID. [Suspect]
     Active Substance: LINEZOLID
     Indication: MYCOBACTERIUM ABSCESSUS INFECTION
     Dosage: 600 MILLIGRAM, QD
     Route: 048
     Dates: start: 20180221
  8. CREON [Concomitant]
     Active Substance: PANCRELIPASE AMYLASE\PANCRELIPASE LIPASE\PANCRELIPASE PROTEASE
     Indication: CYSTIC FIBROSIS
     Dosage: UNK, Q3D
     Route: 048
     Dates: start: 199912
  9. CLOFAZIMINE [Concomitant]
     Active Substance: CLOFAZIMINE
     Indication: MYCOBACTERIUM ABSCESSUS INFECTION
     Dosage: 100 MILLIGRAM, QD
     Route: 048
     Dates: start: 20180221
  10. HYPERTONIC SALINE SOLUTION [Concomitant]
     Active Substance: SODIUM CHLORIDE
     Indication: CYSTIC FIBROSIS
     Dosage: 4 MILLILITER, QD
     Route: 055
     Dates: start: 199912
  11. DAFALGAN [Concomitant]
     Active Substance: ACETAMINOPHEN
     Dosage: 1 GRAM, PRN

REACTIONS (3)
  - Peripheral sensory neuropathy [Not Recovered/Not Resolved]
  - Cough [Recovered/Resolved]
  - Dyspnoea [Recovered/Resolved]

NARRATIVE: CASE EVENT DATE: 20180110
